FAERS Safety Report 22166825 (Version 1)
Quarter: 2023Q2

REPORT INFORMATION
  Report Type: Spontaneous
  Country: US (occurrence: US)
  Receive Date: 20230403
  Receipt Date: 20230403
  Transmission Date: 20230722
  Serious: Yes (Other)
  Sender: FDA-Public Use
  Company Number: US-MYLANLABS-2023M1033363

PATIENT
  Age: 58 Year
  Sex: Female

DRUGS (20)
  1. BUPROPION [Suspect]
     Active Substance: BUPROPION
     Indication: Mood swings
     Dosage: UNK (INITIAL DOSE UNKNOWN)
     Route: 065
  2. BUPROPION [Suspect]
     Active Substance: BUPROPION
     Indication: Depression
     Dosage: 450 MILLIGRAM, QD
     Route: 065
  3. LITHIUM [Suspect]
     Active Substance: LITHIUM
     Indication: Mood swings
     Dosage: UNK (RECEIVED UNDER TRIAL)
     Route: 065
  4. LITHIUM [Suspect]
     Active Substance: LITHIUM
     Indication: Depression
  5. LAMOTRIGINE [Suspect]
     Active Substance: LAMOTRIGINE
     Indication: Mood swings
     Dosage: UNK (INITIAL DOSE UNKNOWN)
     Route: 065
     Dates: start: 2016
  6. LAMOTRIGINE [Suspect]
     Active Substance: LAMOTRIGINE
     Indication: Depression
     Dosage: 300 MILLIGRAM, QD (RECEIVED UP-TITRATED DOSE)
     Route: 065
  7. LAMOTRIGINE [Suspect]
     Active Substance: LAMOTRIGINE
     Dosage: 325 MILLIGRAM, QD (DOSE WAS FURTHER UP-TITRATED)
     Route: 065
  8. LAMOTRIGINE [Suspect]
     Active Substance: LAMOTRIGINE
     Dosage: RESTARTED DOSE UNKNOWN
     Route: 065
  9. LAMOTRIGINE [Suspect]
     Active Substance: LAMOTRIGINE
     Dosage: 75 MILLIGRAM, QD (RECEIVED UP-TITRATED DOSE)
     Route: 065
  10. LAMOTRIGINE [Suspect]
     Active Substance: LAMOTRIGINE
     Dosage: 35 MILLIGRAM, QD (CONTINUED AT DECREASED DOSE OF 35MG/DAY)
     Route: 065
  11. GABAPENTIN [Suspect]
     Active Substance: GABAPENTIN
     Indication: Mood swings
     Dosage: 3200 MILLIGRAM, QD
     Route: 065
  12. GABAPENTIN [Suspect]
     Active Substance: GABAPENTIN
     Indication: Depression
  13. TRAZODONE [Suspect]
     Active Substance: TRAZODONE HYDROCHLORIDE
     Indication: Mood swings
     Dosage: 50 MILLIGRAM, HS (RECEIVED AT BEDTIME AS NEEDED)
     Route: 065
  14. TRAZODONE [Suspect]
     Active Substance: TRAZODONE HYDROCHLORIDE
     Indication: Depression
  15. ARIPIPRAZOLE [Suspect]
     Active Substance: ARIPIPRAZOLE
     Indication: Mood swings
     Dosage: UNK (DOSE UNKNOWN)
     Route: 065
  16. ARIPIPRAZOLE [Suspect]
     Active Substance: ARIPIPRAZOLE
     Indication: Depression
  17. DULOXETINE [Suspect]
     Active Substance: DULOXETINE
     Indication: Mood swings
     Dosage: UNK (INITIAL DOSE UNKNOWN)
     Route: 065
  18. DULOXETINE [Suspect]
     Active Substance: DULOXETINE
     Indication: Depression
     Dosage: 120 MILLIGRAM, QD
     Route: 065
  19. VILAZODONE [Concomitant]
     Active Substance: VILAZODONE
     Indication: Mood swings
     Dosage: UNK (RECEIVED UNDER TRIAL)
     Route: 065
  20. VILAZODONE [Concomitant]
     Active Substance: VILAZODONE
     Indication: Depression

REACTIONS (3)
  - Chorea [Recovered/Resolved]
  - Drug ineffective [Unknown]
  - Off label use [Unknown]
